FAERS Safety Report 9124373 (Version 2)
Quarter: 2013Q1

REPORT INFORMATION
  Report Type: Spontaneous
  Country: US (occurrence: US)
  Receive Date: 20130227
  Receipt Date: 20130313
  Transmission Date: 20140127
  Serious: Yes (Other)
  Sender: FDA-Public Use
  Company Number: PHEH2013US004646

PATIENT
  Age: 54 Year
  Sex: Female
  Weight: 118 kg

DRUGS (10)
  1. VIVELLE DOT [Suspect]
     Indication: MENOPAUSAL SYMPTOMS
     Dosage: 1 DF, QW (WEEKLY)
     Route: 062
     Dates: start: 2008
  2. VIVELLE DOT [Suspect]
     Dosage: 1 DF, QD (WEEKLY)
     Route: 062
  3. LIOTHYRONINE [Concomitant]
     Dosage: 5 UG, UNK
     Route: 048
  4. LEVOTHYROXINE [Concomitant]
     Indication: HYPOTHYROIDISM
     Dosage: 137 UG, QD
     Route: 048
  5. BUPROPION [Concomitant]
     Indication: ANTIDEPRESSANT THERAPY
     Dosage: 150 MG, QD
     Route: 048
  6. PROGESTERONE [Concomitant]
     Indication: MENOPAUSAL SYMPTOMS
     Dosage: 100 MG, QHS
     Route: 048
     Dates: start: 2008
  7. GABAPENTIN [Concomitant]
     Indication: NEURALGIA
     Dosage: 300 MG, QID
     Route: 048
  8. TIZANIDINE [Concomitant]
     Indication: FIBROMYALGIA
     Dosage: 4 MG, QHS
     Route: 048
  9. CYANOCOBALAMIN [Concomitant]
     Dosage: 10 ML, UNK
  10. AMBIEN [Concomitant]
     Dosage: 10 MG, UNK

REACTIONS (2)
  - Vaginal haemorrhage [Recovered/Resolved]
  - Inappropriate schedule of drug administration [Unknown]
